FAERS Safety Report 4981063-1 (Version None)
Quarter: 2006Q2

REPORT INFORMATION
  Report Type: 
  Country: None (occurrence: None)
  Receive Date: 20060418
  Receipt Date: 20060403
  Transmission Date: 20061013
  Serious: Yes (Other)
  Sender: FDA-Public Use
  Company Number: 2006S1002871

PATIENT
  Age: 56 Year
  Sex: Female
  Weight: 137.8935 kg

DRUGS (10)
  1. PHENYTOIN SODIUM EXTENDED [Suspect]
     Indication: BRAIN NEOPLASM
     Dosage: SEE IMAGE
     Route: 048
     Dates: start: 20060327
  2. PHENYTOIN SODIUM EXTENDED [Suspect]
     Indication: BRAIN NEOPLASM
     Dosage: SEE IMAGE
     Route: 048
     Dates: start: 20060327
  3. PHENYTOIN SODIUM EXTENDED [Suspect]
     Indication: BRAIN NEOPLASM
     Dosage: SEE IMAGE
     Route: 048
     Dates: start: 20060327
  4. METFORMIN [Concomitant]
  5. INSULIN [Concomitant]
  6. .......... [Concomitant]
  7. PIOGLITAZONE  HYDROCHLORIED [Concomitant]
  8. ................... [Concomitant]
  9. PRAVASTATIN SODIUM [Concomitant]
  10. QUINAPRIL [Concomitant]

REACTIONS (1)
  - GRAND MAL CONVULSION [None]
